FAERS Safety Report 10608431 (Version 1)
Quarter: 2014Q4

REPORT INFORMATION
  Report Type: Spontaneous
  Country: US (occurrence: US)
  Receive Date: 20141125
  Receipt Date: 20141125
  Transmission Date: 20150529
  Serious: Yes (Hospitalization)
  Sender: FDA-Public Use
  Company Number: US-JNJFOC-20141115967

PATIENT
  Sex: Male

DRUGS (5)
  1. METOPROLOL XL [Concomitant]
     Active Substance: METOPROLOL
  2. IMBRUVICA [Suspect]
     Active Substance: IBRUTINIB
     Indication: CHRONIC LYMPHOCYTIC LEUKAEMIA
     Route: 048
     Dates: start: 20140827, end: 2014
  3. BACTRIM DS [Concomitant]
     Active Substance: SULFAMETHOXAZOLE\TRIMETHOPRIM
  4. ATORVASTATIN [Concomitant]
     Active Substance: ATORVASTATIN
  5. HCTZ [Concomitant]
     Active Substance: HYDROCHLOROTHIAZIDE

REACTIONS (1)
  - Aortic valve stenosis [Unknown]

NARRATIVE: CASE EVENT DATE: 2014
